FAERS Safety Report 6501884-3 (Version None)
Quarter: 2009Q4

REPORT INFORMATION
  Report Type: 
  Country: None (occurrence: None)
  Receive Date: 20091216
  Receipt Date: 20091204
  Transmission Date: 20100525
  Serious: Yes (Other)
  Sender: FDA-Public Use
  Company Number: PHHY2009IT53519

PATIENT
  Age: 78 Year
  Sex: Female

DRUGS (1)
  1. ZOMETA [Suspect]
     Indication: RENAL CANCER
     Dosage: UNK
     Dates: start: 20070101

REACTIONS (2)
  - METASTASES TO LUNG [None]
  - OSTEONECROSIS [None]
